FAERS Safety Report 10103597 (Version 2)
Quarter: 2014Q2

REPORT INFORMATION
  Report Type: Spontaneous
  Country: CN (occurrence: CN)
  Receive Date: 20140424
  Receipt Date: 20140424
  Transmission Date: 20141212
  Serious: Yes (Death, Other)
  Sender: FDA-Public Use
  Company Number: CN-NAPPMUNDI-GBR-2013-0016691

PATIENT
  Sex: Female

DRUGS (8)
  1. OXYCONTIN TABLETS [Suspect]
     Indication: CANCER PAIN
     Dosage: 120 MG, BID
     Route: 048
  2. OXYCONTIN TABLETS [Suspect]
     Dosage: 200 MG, UNK
     Route: 048
  3. OXYCONTIN TABLETS [Suspect]
     Dosage: 300 MG, UNK
     Route: 048
  4. OXYCONTIN TABLETS [Suspect]
     Dosage: 10 MG, UNK
     Route: 048
  5. OXYCONTIN TABLETS [Suspect]
     Dosage: 480 MG, Q12H
  6. MORPHINE [Concomitant]
     Indication: BREAKTHROUGH PAIN
     Dosage: UNK UNK, NOCTE
     Route: 065
  7. ANTIDEPRESSANTS [Concomitant]
     Indication: DEPRESSION
  8. ANTICONVULSANTS [Concomitant]

REACTIONS (5)
  - Dyspnoea [Unknown]
  - Constipation [Not Recovered/Not Resolved]
  - Malignant neoplasm progression [Fatal]
  - Lung infection [Recovered/Resolved]
  - Drug ineffective [Recovering/Resolving]
